FAERS Safety Report 25835948 (Version 1)
Quarter: 2025Q3

REPORT INFORMATION
  Report Type: Spontaneous
  Country: CA (occurrence: CA)
  Receive Date: 20250923
  Receipt Date: 20250923
  Transmission Date: 20251021
  Serious: Yes (Death, Hospitalization, Other)
  Sender: AUROBINDO
  Company Number: CA-AUROBINDO-AUR-APL-2025-047708

PATIENT
  Age: 35 Year
  Sex: Male

DRUGS (4)
  1. AMOXICILLIN\CLAVULANIC ACID [Suspect]
     Active Substance: AMOXICILLIN\CLAVULANIC ACID
     Indication: Sinusitis
     Dosage: 850 MILLIGRAM, TWO TIMES A DAY
     Route: 048
  2. AMOXICILLIN\CLAVULANIC ACID [Suspect]
     Active Substance: AMOXICILLIN\CLAVULANIC ACID
     Indication: Pharyngitis
  3. MEROPENEM [Suspect]
     Active Substance: MEROPENEM
     Indication: Product used for unknown indication
     Route: 042
  4. CEFAZOLIN [Suspect]
     Active Substance: CEFAZOLIN
     Indication: Product used for unknown indication
     Route: 065

REACTIONS (8)
  - Bacteraemia [Fatal]
  - Bronchopulmonary aspergillosis [Fatal]
  - Drug reaction with eosinophilia and systemic symptoms [Fatal]
  - Haemophagocytic lymphohistiocytosis [Fatal]
  - Organ failure [Fatal]
  - Pneumonia necrotising [Fatal]
  - Rash [Fatal]
  - Toxic epidermal necrolysis [Fatal]
